APPROVED DRUG PRODUCT: CYCLOPHOSPHAMIDE
Active Ingredient: CYCLOPHOSPHAMIDE
Strength: 50MG
Dosage Form/Route: CAPSULE;ORAL
Application: A218282 | Product #002 | TE Code: AB
Applicant: EIRGEN PHARMA LTD
Approved: Dec 3, 2024 | RLD: No | RS: No | Type: RX